FAERS Safety Report 6212270-8 (Version None)
Quarter: 2009Q2

REPORT INFORMATION
  Report Type: 
  Country: None (occurrence: None)
  Receive Date: 20090529
  Receipt Date: 20090517
  Transmission Date: 20091009
  Serious: Yes (Death, Life-Threatening, Hospitalization, Other)
  Sender: FDA-Public Use
  Company Number: ADE#  09-233DPR

PATIENT
  Sex: Male

DRUGS (1)
  1. DIGOXIN STRENGTH UNKNOWN [Suspect]

REACTIONS (3)
  - CARDIOACTIVE DRUG LEVEL INCREASED [None]
  - HYPOTENSION [None]
  - PRODUCT QUALITY ISSUE [None]
